FAERS Safety Report 7504886-3 (Version None)
Quarter: 2011Q2

REPORT INFORMATION
  Report Type: 
  Country: None (occurrence: None)
  Receive Date: 20110526
  Receipt Date: 20110518
  Transmission Date: 20111010
  Serious: Yes (Hospitalization)
  Sender: FDA-Public Use
  Company Number: US-BIOGENIDEC-2011BI011826

PATIENT
  Age: 29 Year
  Sex: Male

DRUGS (15)
  1. METFORMIN HCL [Concomitant]
     Indication: TYPE 1 DIABETES MELLITUS
     Route: 048
  2. METOPROLOL TARTRATE [Concomitant]
     Route: 048
     Dates: start: 20110201
  3. TRAMADOL HCL [Concomitant]
     Route: 048
  4. IBUPROFEN [Concomitant]
     Route: 048
  5. ENALAPRIL MALEATE [Concomitant]
     Indication: HYPERTENSION
     Route: 048
  6. METOPROLOL TARTRATE [Concomitant]
     Indication: HYPERTENSION
     Route: 048
  7. HYDROCHLOROTHIAZIDE [Concomitant]
     Indication: HYPERTENSION
     Route: 048
  8. LISINOPRIL [Concomitant]
     Indication: HYPERTENSION
     Route: 048
  9. BACLOFEN [Concomitant]
     Route: 048
  10. LYRICA [Concomitant]
     Route: 048
  11. GLYBURIDE [Concomitant]
     Indication: TYPE 1 DIABETES MELLITUS
     Route: 048
  12. INSULIN [Concomitant]
     Indication: TYPE 1 DIABETES MELLITUS
  13. NORTRIPTYLINE HCL [Concomitant]
     Route: 048
  14. TYSABRI [Suspect]
     Indication: MULTIPLE SCLEROSIS
     Route: 042
     Dates: start: 20091216, end: 20100520
  15. RANITIDINE [Concomitant]
     Route: 048

REACTIONS (5)
  - STAPHYLOCOCCAL SEPSIS [None]
  - SKIN ULCER [None]
  - ESCHERICHIA SEPSIS [None]
  - INFECTED SKIN ULCER [None]
  - ENTEROCOCCAL SEPSIS [None]
